FAERS Safety Report 19680785 (Version 1)
Quarter: 2021Q3

REPORT INFORMATION
  Report Type: Report from Study
  Country: US (occurrence: US)
  Receive Date: 20210810
  Receipt Date: 20210810
  Transmission Date: 20211014
  Serious: Yes (Hospitalization)
  Sender: FDA-Public Use
  Company Number: US-EXELIXIS-CABO-21043069

PATIENT
  Age: 64 Year
  Sex: Male
  Weight: 96 kg

DRUGS (1)
  1. CABOMETYX [Suspect]
     Active Substance: CABOZANTINIB S-MALATE
     Indication: RENAL CELL CARCINOMA
     Dosage: 40 MG, QD
     Route: 048
     Dates: start: 202101

REACTIONS (2)
  - Oedema peripheral [Unknown]
  - Candida infection [Unknown]

NARRATIVE: CASE EVENT DATE: 20210726
